FAERS Safety Report 16313309 (Version 1)
Quarter: 2019Q2

REPORT INFORMATION
  Report Type: Report from Study
  Country: ES (occurrence: ES)
  Receive Date: 20190515
  Receipt Date: 20190515
  Transmission Date: 20190711
  Serious: Yes (Hospitalization, Other)
  Sender: FDA-Public Use
  Company Number: ES-ACCORD-127097

PATIENT
  Age: 79 Year
  Sex: Female

DRUGS (3)
  1. OLMESARTAN/OLMESARTAN MEDOXOMIL [Concomitant]
  2. OMEPRAZOLE. [Concomitant]
     Active Substance: OMEPRAZOLE
  3. METHOTREXATE. [Suspect]
     Active Substance: METHOTREXATE
     Indication: RHEUMATOID ARTHRITIS
     Dosage: FOR 4 MONTHS

REACTIONS (3)
  - Pneumonitis [Unknown]
  - Bicytopenia [Unknown]
  - Mucosal inflammation [Unknown]
